FAERS Safety Report 5323828-2 (Version None)
Quarter: 2007Q2

REPORT INFORMATION
  Report Type: 
  Country: None (occurrence: None)
  Receive Date: 20070514
  Receipt Date: 20070510
  Transmission Date: 20071010
  Serious: Yes (Hospitalization)
  Sender: FDA-Public Use
  Company Number: B0470042A

PATIENT
  Age: 57 Year
  Sex: Male

DRUGS (10)
  1. PAXIL [Suspect]
     Indication: DEPRESSION
     Route: 048
  2. TEGRETOL [Concomitant]
     Route: 048
  3. SYMMETREL [Concomitant]
     Route: 048
  4. PARLODEL [Concomitant]
     Route: 048
  5. UNKNOWN MEDICATION [Concomitant]
     Route: 048
  6. AMOXAN [Concomitant]
     Route: 048
  7. RIVOTRIL [Concomitant]
     Route: 048
  8. AKINETON [Concomitant]
     Route: 065
  9. UNKNOWN MEDICATION [Concomitant]
     Route: 048
  10. UNKNOWN DRUG [Concomitant]
     Route: 065

REACTIONS (7)
  - COMA [None]
  - DRUG TOXICITY [None]
  - HYPERHIDROSIS [None]
  - JOINT STIFFNESS [None]
  - MYDRIASIS [None]
  - SEROTONIN SYNDROME [None]
  - TACHYCARDIA [None]
